FAERS Safety Report 5455781-5 (Version None)
Quarter: 2007Q3

REPORT INFORMATION
  Report Type: 
  Country: None (occurrence: None)
  Receive Date: 20070913
  Receipt Date: 20070913
  Transmission Date: 20080115
  Serious: Yes (Other)
  Sender: FDA-Public Use
  Company Number: None

PATIENT
  Sex: Male

DRUGS (12)
  1. BORTEZOMIB [Suspect]
     Indication: MULTIPLE MYELOMA
     Dosage: 1.95 MG X1 (DAYS 1,4,8,11) IV PUSH
     Route: 042
     Dates: start: 20070703, end: 20070916
  2. OMEPRAZOLE [Concomitant]
  3. POTASSIUM CHLORIDE [Concomitant]
  4. OXYCODONE HCL [Concomitant]
  5. ACETAMINOPHEN AND HYDROCODONE BITARTRATE [Concomitant]
  6. CEPHALEXIN [Concomitant]
  7. FUROSEMIDE [Concomitant]
  8. INSULIN AASPART [Concomitant]
  9. METOPROLOL SUCCINATE [Concomitant]
  10. WARFARIN SODIUM [Concomitant]
  11. ALBUTEROL [Concomitant]
  12. VALCYCLOVIR [Concomitant]

REACTIONS (2)
  - DISEASE RECURRENCE [None]
  - HERPES ZOSTER [None]
